FAERS Safety Report 5915522-1 (Version None)
Quarter: 2008Q4

REPORT INFORMATION
  Report Type: 
  Country: None (occurrence: None)
  Receive Date: 20081010
  Receipt Date: 20080804
  Transmission Date: 20090506
  Serious: No
  Sender: FDA-Public Use
  Company Number: A0732451A

PATIENT
  Age: 70 Year
  Sex: Female
  Weight: 83.6 kg

DRUGS (6)
  1. TYKERB [Suspect]
     Indication: BREAST CANCER
     Dosage: 1250MG PER DAY
     Route: 048
  2. METFORMIN HCL [Concomitant]
     Dosage: 1TAB PER DAY
     Route: 048
  3. AMARYL [Concomitant]
     Dosage: 1MG PER DAY
     Route: 048
  4. TRIAMTERENE AND HYDROCHLOROTHIAZIDE [Concomitant]
     Dosage: 75.5MG PER DAY
     Route: 048
  5. VITAMIN B-12 [Concomitant]
     Dosage: 1000MG PER DAY
  6. ASPIRIN [Concomitant]
     Dosage: 81MG PER DAY
     Route: 048

REACTIONS (2)
  - LOCAL SWELLING [None]
  - RASH PRURITIC [None]
